FAERS Safety Report 8041034 (Version 2)
Quarter: 2014Q2

REPORT INFORMATION
  Report Type: Spontaneous
  Country: None (occurrence: None)
  Receive Date: 20110705
  Receipt Date: 20140415
  Transmission Date: 20141212
  Serious: Yes (Hospitalization)
  Sender: FDA-Public Use
  Company Number: AUR-APL-2011-03641

PATIENT
  Sex: Male

DRUGS (1)
  1. CEFTAZIDIME (CEFTAZIDIME) [Suspect]
     Indication: PRODUCT USED FOR UNKNOWN INDICATION

REACTIONS (4)
  - Dyspnoea [None]
  - Hyperhidrosis [None]
  - Rash erythematous [None]
  - Tremor [None]
